FAERS Safety Report 9011995 (Version 1)
Quarter: 2013Q1

REPORT INFORMATION
  Report Type: Spontaneous
  Country: CZ (occurrence: CZ)
  Receive Date: 20130114
  Receipt Date: 20130114
  Transmission Date: 20140127
  Serious: Yes (Life-Threatening, Other)
  Sender: FDA-Public Use
  Company Number: CZ-JNJFOC-20130103123

PATIENT
  Age: 16 Year
  Sex: Female
  Weight: 52.5 kg

DRUGS (3)
  1. REMICADE [Suspect]
     Indication: CROHN^S DISEASE
     Route: 042
     Dates: start: 20080925, end: 20101102
  2. PARALEN [Concomitant]
     Indication: PREMEDICATION
     Route: 048
     Dates: start: 20101102, end: 20101102
  3. SOLU MEDROL [Concomitant]
     Indication: PREMEDICATION
     Route: 051
     Dates: start: 20101102, end: 20101102

REACTIONS (2)
  - Hypersensitivity [Recovered/Resolved]
  - Dermatitis allergic [Recovered/Resolved]
